FAERS Safety Report 7236289-3 (Version None)
Quarter: 2011Q1

REPORT INFORMATION
  Report Type: 
  Country: None (occurrence: None)
  Receive Date: 20110120
  Receipt Date: 20110107
  Transmission Date: 20110831
  Serious: Yes (Hospitalization, Other)
  Sender: FDA-Public Use
  Company Number: US-ELI_LILLY_AND_COMPANY-US201101000201

PATIENT
  Age: 41 Year
  Sex: Male

DRUGS (5)
  1. ZYPREXA [Suspect]
     Dosage: 20 MG, DAILY (1/D)
     Dates: end: 20080101
  2. DEPAKOTE [Concomitant]
  3. ZYPREXA [Suspect]
     Indication: BIPOLAR DISORDER
     Dosage: 5 MG, DAILY (1/D)
     Dates: start: 19980101
  4. ZYPREXA [Suspect]
     Dosage: 15 MG, DAILY (1/D)
  5. ZYPREXA [Suspect]
     Dosage: 10 MG, DAILY (1/D)

REACTIONS (6)
  - BIPOLAR DISORDER [None]
  - INSOMNIA [None]
  - WEIGHT INCREASED [None]
  - ANXIETY [None]
  - HYPERTENSION [None]
  - JOINT INJURY [None]
